FAERS Safety Report 4322015-4 (Version None)
Quarter: 2004Q1

REPORT INFORMATION
  Report Type: 
  Country: None (occurrence: None)
  Receive Date: 20040323
  Receipt Date: 20040315
  Transmission Date: 20041129
  Serious: Yes (Hospitalization, Other)
  Sender: FDA-Public Use
  Company Number: PHRM2004FR01188

PATIENT
  Age: 45 Year
  Sex: Female

DRUGS (10)
  1. TEGRETOL [Suspect]
     Indication: EPILEPSY
     Dosage: 400 MG, BID
     Route: 048
     Dates: end: 20031210
  2. URBANYL [Suspect]
     Indication: EPILEPSY
     Dosage: 10 MG, BID
     Route: 048
  3. DI-ANTALVIC [Suspect]
     Indication: PAIN IN EXTREMITY
     Route: 048
     Dates: start: 20031201, end: 20031216
  4. GARDENAL [Suspect]
     Indication: EPILEPSY
     Dosage: 100 MG, QD
     Route: 048
     Dates: end: 20031210
  5. VASTEN [Suspect]
     Indication: HYPERLIPIDAEMIA
     Route: 048
     Dates: start: 20030601
  6. MOPRAL [Concomitant]
     Route: 048
     Dates: start: 20031201, end: 20031216
  7. COLCHICINE [Concomitant]
     Indication: SCLERODERMA
     Route: 048
  8. CHRONADALATE [Concomitant]
     Route: 048
  9. FRAXIPARINE [Concomitant]
     Route: 058
     Dates: start: 20031201
  10. ASPEGIC 325 [Concomitant]
     Dosage: UNK, UNK
     Route: 048
     Dates: start: 20031201

REACTIONS (10)
  - AMMONIA INCREASED [None]
  - ANTICONVULSANT DRUG LEVEL INCREASED [None]
  - BLOOD ALKALINE PHOSPHATASE INCREASED [None]
  - BLOOD TRIGLYCERIDES INCREASED [None]
  - CHOLESTASIS [None]
  - ELECTROENCEPHALOGRAM ABNORMAL [None]
  - ENCEPHALOPATHY [None]
  - GAMMA-GLUTAMYLTRANSFERASE INCREASED [None]
  - PYREXIA [None]
  - TOE AMPUTATION [None]
